FAERS Safety Report 4578567-2 (Version None)
Quarter: 2005Q1

REPORT INFORMATION
  Report Type: 
  Country: None (occurrence: None)
  Receive Date: 20050204
  Receipt Date: 20050204
  Transmission Date: 20050727
  Serious: Yes (Life-Threatening, Hospitalization)
  Sender: FDA-Public Use
  Company Number: None

PATIENT
  Age: 59 Year
  Sex: Female
  Weight: 90.7194 kg

DRUGS (2)
  1. REMIFENTANIL    AVENTIS [Suspect]
     Indication: SEDATION
     Dosage: 40   ONCE   INTRAVENOU
     Route: 042
     Dates: start: 20050131, end: 20050131
  2. VERSED [Suspect]
     Indication: SEDATION
     Dosage: 0.5   ONCE   INTRAVENOU
     Route: 042
     Dates: start: 20050131, end: 20050131

REACTIONS (3)
  - HYPERTENSION [None]
  - NON-CARDIOGENIC PULMONARY OEDEMA [None]
  - OXYGEN SATURATION DECREASED [None]
